FAERS Safety Report 17901030 (Version 2)
Quarter: 2020Q2

REPORT INFORMATION
  Report Type: Report from Study
  Country: MX (occurrence: MX)
  Receive Date: 20200616
  Receipt Date: 20200622
  Transmission Date: 20200714
  Serious: Yes (Death)
  Sender: FDA-Public Use
  Company Number: NVSC2020MX167467

PATIENT
  Age: 84 Year
  Sex: Female
  Weight: 75 kg

DRUGS (6)
  1. DABEX [Concomitant]
     Indication: DIABETES MELLITUS
     Dosage: 1 DF (IN THE MORNING AND AT NIGHT)
     Route: 048
  2. FEMARA [Suspect]
     Active Substance: LETROZOLE
     Indication: BREAST CANCER
     Dosage: 1 DF, QD
     Route: 048
     Dates: start: 201909, end: 20200521
  3. INDERALICI [Concomitant]
     Active Substance: PROPRANOLOL HYDROCHLORIDE
     Indication: HYPERTENSION
     Dosage: 2 DF, QD
     Route: 048
     Dates: end: 20200521
  4. AVAPRO [Concomitant]
     Active Substance: IRBESARTAN
     Indication: HYPERTENSION
     Dosage: 1 DF, QD
     Route: 048
     Dates: end: 20200521
  5. FERRANINA [Concomitant]
     Indication: IRON DEFICIENCY
     Dosage: UNK
     Route: 048
  6. DABEX [Concomitant]
     Dosage: 0.5 DF (IN THE MORNING)
     Route: 048
     Dates: end: 20200521

REACTIONS (7)
  - Aphasia [Unknown]
  - Dysphagia [Unknown]
  - Cough [Unknown]
  - Cerebrovascular accident [Fatal]
  - Diarrhoea [Unknown]
  - Hot flush [Unknown]
  - Pruritus [Unknown]

NARRATIVE: CASE EVENT DATE: 201909
